FAERS Safety Report 8333954-1 (Version None)
Quarter: 2012Q2

REPORT INFORMATION
  Report Type: 
  Country: None (occurrence: None)
  Receive Date: 20120503
  Receipt Date: 20120424
  Transmission Date: 20120825
  Serious: Yes (Hospitalization, Other)
  Sender: FDA-Public Use
  Company Number: ES-ASTRAZENECA-2012SE26938

PATIENT
  Age: 73 Year
  Sex: Female

DRUGS (15)
  1. AMOXICILLIN [Concomitant]
     Indication: RESPIRATORY TRACT INFECTION
     Route: 048
     Dates: start: 20110725, end: 20110730
  2. LEUCOVORIN CALCIUM [Concomitant]
  3. DUPHALAC [Concomitant]
  4. TARKA [Interacting]
     Indication: HYPERTENSION
     Dosage: 180MG/2MG ONE CAPSULE PER DAY
     Route: 048
     Dates: end: 20110731
  5. ATENOLOL [Concomitant]
     Indication: HYPERTENSION
     Route: 048
     Dates: start: 20110401, end: 20110731
  6. BUPRENORPHINE [Concomitant]
  7. OMEPRAZOLE [Concomitant]
  8. SIMVASTATIN [Concomitant]
  9. CLONAZEPAM [Concomitant]
  10. ACETAMINOPHEN [Concomitant]
  11. IBUPROFEN [Interacting]
     Indication: RESPIRATORY TRACT INFECTION
     Route: 048
     Dates: start: 20110725, end: 20110730
  12. METHOTREXATE SODIUM [Concomitant]
  13. TORSEMIDE [Interacting]
     Indication: HYPERTENSION
     Route: 048
     Dates: end: 20110731
  14. ATACAND [Suspect]
     Indication: HYPERTENSION
     Route: 048
     Dates: start: 20110201, end: 20110731
  15. BUPREX [Concomitant]

REACTIONS (6)
  - HYPERKALAEMIA [None]
  - PYREXIA [None]
  - DRUG INTERACTION [None]
  - CONFUSIONAL STATE [None]
  - RESPIRATORY DISORDER [None]
  - RENAL FAILURE ACUTE [None]
